FAERS Safety Report 9300250 (Version 1)
Quarter: 2013Q1

REPORT INFORMATION
  Report Type: Spontaneous
  Country: US (occurrence: None)
  Receive Date: 20130104
  Receipt Date: 20130104
  Transmission Date: 20140127
  Serious: Yes (Other)
  Sender: FDA-Public Use
  Company Number: FK201201268

PATIENT
  Sex: 0

DRUGS (1)
  1. DIPRIVAN [Suspect]
     Indication: NUCLEAR MAGNETIC RESONANCE IMAGING
     Dosage: 250ML, PER HOUR, INTRAVENOUS (NOT SPECIFIED)
     Route: 042

REACTIONS (1)
  - Drug effect decreased [None]
